FAERS Safety Report 6199681-4 (Version None)
Quarter: 2009Q2

REPORT INFORMATION
  Report Type: 
  Country: None (occurrence: None)
  Receive Date: 20090522
  Receipt Date: 20090515
  Transmission Date: 20091009
  Serious: Yes (Other)
  Sender: FDA-Public Use
  Company Number: US-BAXTER-2009BH008801

PATIENT
  Age: 2 Year
  Sex: Female
  Weight: 16 kg

DRUGS (5)
  1. SUPRANE [Suspect]
     Indication: GENERAL ANAESTHESIA
     Route: 065
  2. SEVOFLURANE [Concomitant]
     Indication: INDUCTION OF ANAESTHESIA
     Route: 055
  3. NITROUS OXIDE [Concomitant]
     Indication: INDUCTION OF ANAESTHESIA
     Route: 055
  4. OXYGEN [Concomitant]
     Indication: INDUCTION OF ANAESTHESIA
     Route: 055
  5. NEUROMUSCULAR BLOCKADE [Concomitant]
     Indication: DRUG USE FOR UNKNOWN INDICATION
     Route: 065

REACTIONS (4)
  - BLOOD PRESSURE DECREASED [None]
  - CARBON MONOXIDE POISONING [None]
  - DEVICE INTERACTION [None]
  - OXYGEN SATURATION DECREASED [None]
